FAERS Safety Report 8312403-3 (Version None)
Quarter: 2012Q2

REPORT INFORMATION
  Report Type: 
  Country: None (occurrence: None)
  Receive Date: 20120425
  Receipt Date: 20120417
  Transmission Date: 20120825
  Serious: Yes (Death, Hospitalization)
  Sender: FDA-Public Use
  Company Number: DE-AMGEN-DEUCT2012024010

PATIENT
  Age: 56 Year
  Sex: Male

DRUGS (5)
  1. ERBITUX [Concomitant]
     Indication: ANAEMIA
     Dosage: UNK UNK, QWK
     Route: 042
     Dates: start: 20120131, end: 20120306
  2. FLUOROURACIL [Concomitant]
     Indication: ANAEMIA
     Dosage: UNK UNK, QWK
     Route: 042
     Dates: start: 20120131, end: 20120307
  3. RIBOFOLIN [Concomitant]
     Indication: ANAEMIA
     Dosage: UNK
     Route: 042
     Dates: start: 20120131, end: 20120306
  4. IRINOTECAN HCL [Concomitant]
     Indication: ANAEMIA
     Dosage: UNK UNK, QWK
     Route: 042
     Dates: start: 20120131, end: 20120306
  5. DARBEPOETIN ALFA [Suspect]
     Indication: ANAEMIA
     Dosage: 500 UNK, UNK
     Route: 042
     Dates: start: 20120403, end: 20120403

REACTIONS (1)
  - PULMONARY EMBOLISM [None]
